FAERS Safety Report 17896456 (Version 1)
Quarter: 2020Q2

REPORT INFORMATION
  Report Type: Spontaneous
  Country: US (occurrence: US)
  Receive Date: 20200615
  Receipt Date: 20200615
  Transmission Date: 20200714
  Serious: Yes (Death)
  Sender: FDA-Public Use
  Company Number: None

PATIENT
  Age: 61 Year
  Sex: Male

DRUGS (22)
  1. REMDESIVIR SOLUTION 100 MG VIAL [Suspect]
     Active Substance: REMDESIVIR
     Indication: COVID-19 PNEUMONIA
     Route: 042
     Dates: start: 20200608, end: 20200608
  2. REMDESIVIR SOLUTION 100 MG VIAL [Suspect]
     Active Substance: REMDESIVIR
     Indication: COVID-19 PNEUMONIA
     Route: 042
     Dates: start: 20200609, end: 20200613
  3. GLYCOPYRROLATE. [Concomitant]
     Active Substance: GLYCOPYRROLATE
  4. MUPIROCIN. [Concomitant]
     Active Substance: MUPIROCIN
  5. TOCILIZUMAB. [Concomitant]
     Active Substance: TOCILIZUMAB
  6. FLUTICASONE FUROATE-VILANTEROL [Concomitant]
  7. FUROSEMIDE. [Concomitant]
     Active Substance: FUROSEMIDE
  8. SENNA-DOCUSATE [Concomitant]
     Active Substance: DOCUSATE SODIUM\SENNOSIDES
  9. ACETAMINOPHEN. [Concomitant]
     Active Substance: ACETAMINOPHEN
  10. ENOXAPARIN [Concomitant]
     Active Substance: ENOXAPARIN
  11. FAMOTIDINE. [Concomitant]
     Active Substance: FAMOTIDINE
  12. LIDOCAINE. [Concomitant]
     Active Substance: LIDOCAINE
  13. NOREPINEPHRINE. [Concomitant]
     Active Substance: NOREPINEPHRINE
  14. TAMSULOSIN [Concomitant]
     Active Substance: TAMSULOSIN
  15. CHLORHEXIDINE [Concomitant]
     Active Substance: CHLORHEXIDINE
  16. ETOMIDATE. [Concomitant]
     Active Substance: ETOMIDATE
  17. INSULIN ASPART [Concomitant]
     Active Substance: INSULIN ASPART
  18. ALBUTEROL NEB SOLN [Concomitant]
  19. PROPOFOL. [Concomitant]
     Active Substance: PROPOFOL
  20. TIOTROPIUM [Concomitant]
     Active Substance: TIOTROPIUM
  21. ASPIRIN EC [Concomitant]
     Active Substance: ASPIRIN
  22. ALBUTEROL MDI [Concomitant]
     Active Substance: ALBUTEROL

REACTIONS (9)
  - Cardiac arrest [None]
  - Pulse absent [None]
  - Hypotension [None]
  - Electrocardiogram ST segment elevation [None]
  - Sinus tachycardia [None]
  - Pulseless electrical activity [None]
  - Apnoeic attack [None]
  - Tachycardia [None]
  - Areflexia [None]

NARRATIVE: CASE EVENT DATE: 20200614
